FAERS Safety Report 5610856-2 (Version None)
Quarter: 2008Q1

REPORT INFORMATION
  Report Type: 
  Country: None (occurrence: None)
  Receive Date: 20080201
  Receipt Date: 20080123
  Transmission Date: 20080703
  Serious: Yes (Death)
  Sender: FDA-Public Use
  Company Number: JP-JNJFOC-20080100850

PATIENT
  Sex: Female
  Weight: 68.4 kg

DRUGS (9)
  1. RISPERDAL [Suspect]
     Route: 048
  2. RISPERDAL [Suspect]
     Indication: DRUG USE FOR UNKNOWN INDICATION
     Route: 048
  3. ZOTEPINE [Concomitant]
     Route: 048
  4. ZOTEPINE [Concomitant]
     Route: 048
  5. ZOTEPINE [Concomitant]
     Indication: SCHIZOPHRENIA, CATATONIC TYPE
     Route: 048
  6. FLUNITRAZEPAM [Concomitant]
  7. NITRAZEPAM [Concomitant]
  8. VALPROATE SODIUM [Concomitant]
  9. SENNOSIDE [Concomitant]

REACTIONS (1)
  - DEATH [None]
